FAERS Safety Report 7709986 (Version 3)
Quarter: 2018Q2

REPORT INFORMATION
  Report Type: Spontaneous
  Country: US (occurrence: US)
  Receive Date: 20101214
  Receipt Date: 20180619
  Transmission Date: 20180711
  Serious: No
  Sender: FDA-Public Use
  Company Number: US-ASTRAZENECA-2010SE49254

PATIENT
  Age: 59 Year
  Sex: Female
  Weight: 71.2 kg

DRUGS (7)
  1. METOPROLOL. [Concomitant]
     Active Substance: METOPROLOL
     Indication: HYPERTENSION
  2. LISINOPRIL. [Suspect]
     Active Substance: LISINOPRIL
     Indication: HYPERTENSION
     Route: 048
  3. METOPROLOL TARTRATE. [Suspect]
     Active Substance: METOPROLOL TARTRATE
     Indication: HYPERTENSION
     Route: 048
  4. OMEPRAZOLE. [Suspect]
     Active Substance: OMEPRAZOLE
     Indication: GASTROOESOPHAGEAL REFLUX DISEASE
     Dosage: TAKE 1 PILL PER DAY FOR ONE TO THREE DAYS AS NEEDED
     Route: 048
  5. CRESTOR [Suspect]
     Active Substance: ROSUVASTATIN CALCIUM
     Indication: HYPERCHLORAEMIA
     Dosage: HALF A TABLET PER DAY, GENERIC
     Route: 048
     Dates: start: 20180501, end: 20180523
  6. CRESTOR [Suspect]
     Active Substance: ROSUVASTATIN CALCIUM
     Indication: HYPERCHLORAEMIA
     Route: 048
     Dates: end: 201804
  7. SYNTHROID [Concomitant]
     Active Substance: LEVOTHYROXINE SODIUM
     Indication: THYROID DISORDER

REACTIONS (10)
  - Blood triglycerides increased [Unknown]
  - Gastrooesophageal reflux disease [Unknown]
  - Formication [Unknown]
  - Depression [Unknown]
  - Blood cholesterol increased [Recovering/Resolving]
  - Pruritus generalised [Unknown]
  - Intentional product misuse [Unknown]
  - Skin burning sensation [Unknown]
  - Tongue disorder [Unknown]
  - Blood pressure abnormal [Unknown]

NARRATIVE: CASE EVENT DATE: 2003
